FAERS Safety Report 5515386-4 (Version None)
Quarter: 2007Q4

REPORT INFORMATION
  Report Type: 
  Country: None (occurrence: None)
  Receive Date: 20071109
  Receipt Date: 20071026
  Transmission Date: 20080405
  Serious: Yes (Hospitalization)
  Sender: FDA-Public Use
  Company Number: 163503ISR

PATIENT
  Age: 54 Year

DRUGS (4)
  1. FLUOROURACIL [Suspect]
     Indication: COLON CANCER STAGE III
     Dosage: (1000 MG/M2) INTRAVENOUS (NOT OTHERWISE SPECIFIED)
     Route: 042
     Dates: start: 20060704, end: 20060901
  2. FOLINIC ACID [Suspect]
     Indication: COLON CANCER STAGE III
     Dosage: (200 MG/M2) INTRAVENOUS (NOT OTHERWISE SPECIFIED)
     Route: 042
     Dates: start: 20060704, end: 20060901
  3. OXALIPLATIN [Suspect]
     Indication: COLON CANCER STAGE III
     Dosage: (85 MG/M2) INTRAVENOUS (NOT OTHERWISE SPECIFIED)
     Route: 042
     Dates: start: 20060704, end: 20060901
  4. VALPROIC ACID [Concomitant]

REACTIONS (6)
  - COLONIC POLYP [None]
  - DEHYDRATION [None]
  - DIARRHOEA [None]
  - NO THERAPEUTIC RESPONSE [None]
  - POST PROCEDURAL COMPLICATION [None]
  - RENAL FAILURE ACUTE [None]
